FAERS Safety Report 25597203 (Version 2)
Quarter: 2025Q3

REPORT INFORMATION
  Report Type: Spontaneous
  Country: JP (occurrence: JP)
  Receive Date: 20250723
  Receipt Date: 20250818
  Transmission Date: 20251020
  Serious: No
  Sender: EISAI
  Company Number: JP-Eisai-202504936_DVG_P_1

PATIENT
  Sex: Male

DRUGS (1)
  1. DAYVIGO [Suspect]
     Active Substance: LEMBOREXANT
     Indication: Insomnia

REACTIONS (1)
  - Hepatic cancer [Unknown]
